FAERS Safety Report 13944525 (Version 2)
Quarter: 2018Q1

REPORT INFORMATION
  Report Type: Spontaneous
  Country: US (occurrence: US)
  Receive Date: 20170907
  Receipt Date: 20180122
  Transmission Date: 20180508
  Serious: Yes (Hospitalization)
  Sender: FDA-Public Use
  Company Number: US-ROCHE-1320216

PATIENT
  Sex: Female
  Weight: 86.26 kg

DRUGS (4)
  1. RITUXAN [Suspect]
     Active Substance: RITUXIMAB
     Dosage: DAY 15 STANDARD DOSE
     Route: 042
     Dates: start: 201201, end: 201201
  2. BENADRYL [Suspect]
     Active Substance: DIPHENHYDRAMINE HYDROCHLORIDE
     Indication: PRODUCT USED FOR UNKNOWN INDICATION
     Route: 065
  3. RITUXAN [Suspect]
     Active Substance: RITUXIMAB
     Dosage: DAY 1 STANDARD DOSE
     Route: 042
     Dates: start: 2012, end: 2012
  4. RITUXAN [Suspect]
     Active Substance: RITUXIMAB
     Indication: NERVOUS SYSTEM DISORDER
     Dosage: STANDARD DOSING DAY 1
     Route: 042
     Dates: start: 201201, end: 201201

REACTIONS (5)
  - Overdose [Unknown]
  - Pruritus [Recovered/Resolved]
  - Hypoxia [Recovered/Resolved]
  - Anaphylactic reaction [Recovered/Resolved]
  - Hypersensitivity [Unknown]
